FAERS Safety Report 7999184-8 (Version None)
Quarter: 2011Q4

REPORT INFORMATION
  Report Type: 
  Country: None (occurrence: None)
  Receive Date: 20111216
  Receipt Date: 20111205
  Transmission Date: 20120403
  Serious: Yes (Life-Threatening, Hospitalization, Other)
  Sender: FDA-Public Use
  Company Number: 2011P1013939

PATIENT
  Age: 67 Year
  Sex: Male
  Weight: 71.8044 kg

DRUGS (15)
  1. LISINOPRIL [Concomitant]
  2. FENTANYL CITRATE [Suspect]
     Indication: ANALGESIC THERAPY
     Dosage: 50 MCG;X1;VI ; 50 MCG;X1;IV ; 18 MCG;X1;IV
     Route: 042
     Dates: start: 20110822, end: 20110822
  3. FENTANYL CITRATE [Suspect]
     Indication: ANALGESIC THERAPY
     Dosage: 50 MCG;X1;VI ; 50 MCG;X1;IV ; 18 MCG;X1;IV
     Route: 042
     Dates: start: 20110822, end: 20110822
  4. FENTANYL CITRATE [Suspect]
     Indication: ANALGESIC THERAPY
     Dosage: 50 MCG;X1;VI ; 50 MCG;X1;IV ; 18 MCG;X1;IV
     Route: 042
     Dates: start: 20110822, end: 20110822
  5. HEPARIN [Concomitant]
  6. CLOPIDOGREL [Concomitant]
  7. IOPAMIDOL [Suspect]
     Indication: SCAN WITH CONTRAST
     Dosage: 191 ML;X1;IV
     Route: 042
     Dates: start: 20110822, end: 20110822
  8. NITROGLYCERIN [Concomitant]
  9. ATORVASTATIN [Concomitant]
  10. ASPIRIN [Concomitant]
  11. EPTIFIBATIDE [Concomitant]
  12. CANGRELOR VS CLOPIDOGREL VS PLACEBO (NO PREF. NAME) [Suspect]
     Indication: PERCUTANEOUS CORONARY INTERVENTION
     Dosage: 5.4 ML;X1;IV ; 43.2 ML/HR;X1;IV ; LOADING DOSE CAP;XI
     Route: 042
     Dates: start: 20110822, end: 20110822
  13. CANGRELOR VS CLOPIDOGREL VS PLACEBO (NO PREF. NAME) [Suspect]
     Indication: PERCUTANEOUS CORONARY INTERVENTION
     Dosage: 5.4 ML;X1;IV ; 43.2 ML/HR;X1;IV ; LOADING DOSE CAP;XI
     Route: 042
     Dates: start: 20110822, end: 20110822
  14. CANGRELOR VS CLOPIDOGREL VS PLACEBO (NO PREF. NAME) [Suspect]
     Indication: PERCUTANEOUS CORONARY INTERVENTION
     Dosage: 5.4 ML;X1;IV ; 43.2 ML/HR;X1;IV ; LOADING DOSE CAP;XI
     Route: 042
     Dates: start: 20110822, end: 20110822
  15. CALCIUM ACETATE [Concomitant]

REACTIONS (11)
  - MYOCARDIAL INFARCTION [None]
  - BRADYCARDIA [None]
  - HAEMORRHAGE [None]
  - HAEMOGLOBIN DECREASED [None]
  - RESPIRATORY DISTRESS [None]
  - ERYTHEMA [None]
  - DRUG HYPERSENSITIVITY [None]
  - FLUSHING [None]
  - HYPOTENSION [None]
  - CARDIO-RESPIRATORY ARREST [None]
  - HAEMODYNAMIC INSTABILITY [None]
